FAERS Safety Report 7635083-9 (Version None)
Quarter: 2011Q3

REPORT INFORMATION
  Report Type: 
  Country: None (occurrence: None)
  Receive Date: 20110718
  Receipt Date: 20110713
  Transmission Date: 20111222
  Serious: Yes (Life-Threatening, Other)
  Sender: FDA-Public Use
  Company Number: 2011SP032805

PATIENT
  Age: 30 Year
  Sex: Female

DRUGS (4)
  1. ORTHO TRI-CYCLEN [Concomitant]
  2. SAPHRIS [Suspect]
     Indication: BIPOLAR DISORDER
     Dosage: 5 MG;ONCE
     Dates: start: 20110708, end: 20110708
  3. COLACE [Concomitant]
  4. LAMICTAL [Concomitant]

REACTIONS (2)
  - DYSPNOEA [None]
  - SPEECH DISORDER [None]
